FAERS Safety Report 14194345 (Version 1)
Quarter: 2017Q4

REPORT INFORMATION
  Report Type: Spontaneous
  Country: US (occurrence: US)
  Receive Date: 20171116
  Receipt Date: 20171116
  Transmission Date: 20180321
  Serious: Yes (Other)
  Sender: FDA-Public Use
  Company Number: US-ACCORD-061004

PATIENT
  Age: 62 Year
  Sex: Female

DRUGS (22)
  1. AMLODIPINE [Concomitant]
     Active Substance: AMLODIPINE BESYLATE
     Dosage: STRENGTH: 5 MG
  2. HYDROMORPHONE [Concomitant]
     Active Substance: HYDROMORPHONE
     Dosage: STRENGTH: 4 MG
  3. OXYCODONE/OXYCODONE HYDROCHLORIDE/OXYCODONE PECTINATE/OXYCODONE TEREPHTHALATE [Concomitant]
     Dosage: STRENGTH: 10 MG
  4. PANTOPRAZOLE [Concomitant]
     Active Substance: PANTOPRAZOLE
     Dosage: STRENGTH: 40 MG
  5. ANASTROZOLE. [Suspect]
     Active Substance: ANASTROZOLE
     Indication: BREAST CANCER
     Dates: start: 201612
  6. BUPROPION. [Concomitant]
     Active Substance: BUPROPION
     Dosage: STRENGTH: 300 MG
  7. LAMOTRIGINE. [Concomitant]
     Active Substance: LAMOTRIGINE
     Dosage: STRENGTH: 200 MG
  8. LETROZOLE. [Suspect]
     Active Substance: LETROZOLE
     Indication: BREAST CANCER
     Dates: start: 201509
  9. IBRANCE [Suspect]
     Active Substance: PALBOCICLIB
     Indication: BREAST CANCER
     Dosage: DOSE AFTER RESTART: 75 MG TABLET ONE TABLET DAILY 3 WEEKS THEN ONE WEEK OFF ORALLY
     Dates: start: 201509
  10. GABAPENTIN. [Concomitant]
     Active Substance: GABAPENTIN
     Dosage: STRENGTH: 300 MG
  11. COLECALCIFEROL [Concomitant]
     Active Substance: CHOLECALCIFEROL
     Dosage: STRENGTH: 1000 UNIT
  12. CALCIUM [Concomitant]
     Active Substance: CALCIUM
     Dosage: STRENGTH: 600 MG
  13. LISINOPRIL. [Concomitant]
     Active Substance: LISINOPRIL
     Dosage: STRENGTH: 40 MG
  14. PAROXETINE. [Concomitant]
     Active Substance: PAROXETINE
     Dosage: STRENGTH: 40 MG
  15. HERCEPTIN [Suspect]
     Active Substance: TRASTUZUMAB
     Indication: BREAST CANCER
     Dates: start: 201512
  16. TRAZODONE [Concomitant]
     Active Substance: TRAZODONE HYDROCHLORIDE
     Dosage: STRENGTH: 150 MG
  17. ASCORBIC ACID. [Concomitant]
     Active Substance: ASCORBIC ACID
     Dosage: STRENGTH: 1000 MG
  18. SALBUTAMOL [Concomitant]
     Active Substance: ALBUTEROL
     Dosage: STRENGTH: 90 MCG/ACTUATION AEROSOL INHALER
  19. OXYCODONE HYDROCHLORIDE/PARACETAMOL [Concomitant]
     Dosage: STRENGTH: 5 MG- 325 MG
  20. METFORMIN [Concomitant]
     Active Substance: METFORMIN HYDROCHLORIDE
     Dosage: STRENGTH: 500 MG
  21. NYSTATIN/NYSTATIN/LIPOSOME [Concomitant]
     Dosage: STRENGTH: 10000 UNIT/ML
  22. PROBIOTIC [Concomitant]
     Active Substance: PROBIOTICS NOS
     Dosage: STRENGTH: 10 BILLION CELL

REACTIONS (4)
  - Drug ineffective [Unknown]
  - Dyspnoea exertional [Unknown]
  - Hot flush [Unknown]
  - Cytopenia [Unknown]
